FAERS Safety Report 18948174 (Version 5)
Quarter: 2021Q3

REPORT INFORMATION
  Report Type: Report from Study
  Country: IT (occurrence: IT)
  Receive Date: 20210226
  Receipt Date: 20210713
  Transmission Date: 20211014
  Serious: Yes (Death, Hospitalization, Disabling)
  Sender: FDA-Public Use
  Company Number: IT-EXELIXIS-XL18421037366

PATIENT
  Age: 73 Year
  Sex: Male
  Weight: 66 kg

DRUGS (10)
  1. CARDIOASPIRIN [Concomitant]
     Active Substance: ASPIRIN
  2. XL184 [Suspect]
     Active Substance: CABOZANTINIB
     Indication: HEPATOCELLULAR CARCINOMA
     Dosage: 40 MG, QD
     Route: 048
     Dates: start: 20200411
  3. CORTONE [Concomitant]
     Active Substance: CORTISONE ACETATE
  4. MIRTAZAPINE. [Concomitant]
     Active Substance: MIRTAZAPINE
  5. ZYLORIC [Concomitant]
     Active Substance: ALLOPURINOL
  6. LACIDIPINE [Concomitant]
     Active Substance: LACIDIPINE
  7. XL184 [Suspect]
     Active Substance: CABOZANTINIB
     Dosage: 20 MG, QD
     Route: 048
     Dates: start: 20201228, end: 20210217
  8. OMEPRAZOLE. [Concomitant]
     Active Substance: OMEPRAZOLE
  9. PROSCAR [Concomitant]
     Active Substance: FINASTERIDE
  10. ATEZOLIZUMAB. [Suspect]
     Active Substance: ATEZOLIZUMAB
     Indication: HEPATOCELLULAR CARCINOMA
     Dosage: 1200 MG, Q3WEEKS
     Route: 042
     Dates: start: 20200411

REACTIONS (2)
  - Malignant neoplasm progression [Fatal]
  - Pneumatosis intestinalis [Recovered/Resolved with Sequelae]

NARRATIVE: CASE EVENT DATE: 20210204
